FAERS Safety Report 10100845 (Version 1)
Quarter: 2014Q2

REPORT INFORMATION
  Report Type: Spontaneous
  Country: BR (occurrence: BR)
  Receive Date: 20140423
  Receipt Date: 20140423
  Transmission Date: 20141212
  Serious: Yes (Other)
  Sender: FDA-Public Use
  Company Number: BR-DSJP-DSU-2014-105735

PATIENT
  Sex: 0

DRUGS (3)
  1. OLMETEC 20 MG [Suspect]
     Indication: HYPERTENSION
     Dosage: 20 MG, BID
     Route: 048
     Dates: start: 200909, end: 201008
  2. OLMETEC HCT 20/12.5 [Suspect]
     Indication: HYPERTENSION
     Dosage: 20MG/12.5MG, QD
     Route: 048
     Dates: start: 20091025
  3. AMLODIPINE [Suspect]
     Indication: HYPERTENSION
     Dosage: 5 MG, QD
     Route: 048
     Dates: start: 20091025

REACTIONS (9)
  - Foot deformity [Unknown]
  - Neck pain [None]
  - Back pain [None]
  - Somnolence [None]
  - Malaise [None]
  - Crying [None]
  - Pain in extremity [None]
  - Arthralgia [None]
  - Spinal pain [None]
